FAERS Safety Report 8494262-1 (Version None)
Quarter: 2012Q2

REPORT INFORMATION
  Report Type: 
  Country: None (occurrence: None)
  Receive Date: 20120628
  Receipt Date: 20120614
  Transmission Date: 20120825
  Serious: Yes (Other)
  Sender: FDA-Public Use
  Company Number: JP-2012-15295

PATIENT
  Age: 83 Year
  Sex: Male
  Weight: 52.6 kg

DRUGS (11)
  1. SIGMART (NICORANDIL) [Concomitant]
  2. KREMEZIN (CHARCOAL ACTIVATED) [Concomitant]
  3. ALLOPURINOL [Concomitant]
  4. LASIX [Concomitant]
  5. AMIODARONE HCL [Concomitant]
  6. URINORM (BENZBROMARONE) [Concomitant]
  7. TANATRIL (IMIDAPRIL HYDROCHLORIDE) [Concomitant]
  8. SAMSCA (TOLVAPTAN) TABLET, 15MG MILLIGRAM(S) [Suspect]
     Indication: CARDIAC FAILURE CONGESTIVE
     Dosage: 15 MG, QD, ORAL
     Route: 048
     Dates: start: 20120501, end: 20120512
  9. SELARA (EPLERENONE) [Concomitant]
  10. CASODEX [Concomitant]
  11. PIMOBENDAN (PIMOBENDAN) [Concomitant]

REACTIONS (1)
  - BLOOD CREATINE PHOSPHOKINASE INCREASED [None]
